FAERS Safety Report 7295629-X (Version None)
Quarter: 2011Q1

REPORT INFORMATION
  Report Type: 
  Country: None (occurrence: None)
  Receive Date: 20110211
  Receipt Date: 20110211
  Transmission Date: 20110831
  Serious: No
  Sender: FDA-Public Use
  Company Number: None

PATIENT
  Sex: Male

DRUGS (1)
  1. PHENYTOIN [Suspect]
     Indication: CONVULSION
     Dosage: 200MG DAILY PO
     Route: 048
     Dates: start: 20110210

REACTIONS (2)
  - MEDICATION ERROR [None]
  - PRODUCT LABEL CONFUSION [None]
